FAERS Safety Report 4531014-9 (Version None)
Quarter: 2004Q4

REPORT INFORMATION
  Report Type: 
  Country: None (occurrence: None)
  Receive Date: 20041217
  Receipt Date: 20041207
  Transmission Date: 20050328
  Serious: Yes (Death, Hospitalization)
  Sender: FDA-Public Use
  Company Number: US-MERCK-0412USA01002

PATIENT
  Sex: Male

DRUGS (2)
  1. VIOXX [Suspect]
     Indication: BACK PAIN
     Route: 048
     Dates: start: 19990601
  2. VIOXX [Suspect]
     Indication: ROTATOR CUFF SYNDROME
     Route: 048
     Dates: start: 19990601

REACTIONS (5)
  - CEREBROVASCULAR ACCIDENT [None]
  - DEATH [None]
  - EYELID DISORDER [None]
  - FEELING ABNORMAL [None]
  - VISUAL DISTURBANCE [None]
